FAERS Safety Report 4874708-8 (Version None)
Quarter: 2006Q1

REPORT INFORMATION
  Report Type: 
  Country: None (occurrence: None)
  Receive Date: 20060106
  Receipt Date: 20050922
  Transmission Date: 20060701
  Serious: Yes (Hospitalization, Disabling, Other)
  Sender: FDA-Public Use
  Company Number: US-MERCK-0509USA03613

PATIENT
  Age: 56 Year
  Sex: Male
  Weight: 118 kg

DRUGS (9)
  1. VIOXX [Suspect]
     Indication: ARTHRITIS
     Route: 048
     Dates: end: 20000301
  2. VIOXX [Suspect]
     Route: 048
  3. CARTIA XT [Concomitant]
     Route: 048
     Dates: end: 20000307
  4. IMDUR [Concomitant]
     Route: 048
  5. IMDUR [Concomitant]
     Route: 048
     Dates: start: 20000410
  6. ZESTRIL [Concomitant]
     Route: 048
     Dates: end: 20000307
  7. BUMEX [Concomitant]
     Route: 048
     Dates: end: 20000410
  8. BUMEX [Concomitant]
     Route: 048
  9. LIPITOR [Concomitant]
     Route: 048

REACTIONS (11)
  - ANGINA UNSTABLE [None]
  - BLOOD GLUCOSE INCREASED [None]
  - CORONARY ARTERY DISEASE [None]
  - CORONARY ARTERY STENOSIS [None]
  - DYSLIPIDAEMIA [None]
  - DYSPNOEA [None]
  - GASTROOESOPHAGEAL REFLUX DISEASE [None]
  - GLUCOSE TOLERANCE IMPAIRED [None]
  - MUSCULOSKELETAL CHEST PAIN [None]
  - MYOCARDIAL INFARCTION [None]
  - ORTHOSTATIC HYPOTENSION [None]
